FAERS Safety Report 9411919 (Version 2)
Quarter: 2013Q3

REPORT INFORMATION
  Report Type: Report from Study
  Country: CA (occurrence: CA)
  Receive Date: 20130722
  Receipt Date: 20130809
  Transmission Date: 20140515
  Serious: Yes (Death)
  Sender: FDA-Public Use
  Company Number: PHHY2013CA077318

PATIENT
  Sex: Male

DRUGS (9)
  1. CLOZARIL [Suspect]
     Indication: SCHIZOPHRENIA
     Dosage: UNK
     Dates: start: 20130611
  2. CLOZARIL [Suspect]
     Dosage: 350 MG, PER DAY
     Route: 048
     Dates: start: 20130710
  3. TOPIRAMATE [Concomitant]
     Dosage: UNK
  4. STRATTERA [Concomitant]
     Dosage: UNK
  5. ATROPINE DROP [Concomitant]
     Dosage: UNK
  6. BENZTROPINE [Concomitant]
     Dosage: UNK
  7. NEXIUM [Concomitant]
     Dosage: UNK
  8. COLACE [Concomitant]
     Dosage: UNK
  9. SENOKOT [Concomitant]
     Dosage: UNK

REACTIONS (1)
  - Heat stroke [Fatal]
